FAERS Safety Report 23853286 (Version 1)
Quarter: 2024Q2

REPORT INFORMATION
  Report Type: Spontaneous
  Country: US (occurrence: US)
  Receive Date: 20240514
  Receipt Date: 20240514
  Transmission Date: 20240716
  Serious: Yes (Hospitalization, Other)
  Sender: FDA-Public Use
  Company Number: US-PFIZER INC-202400105645

PATIENT
  Age: 13 Year
  Sex: Female

DRUGS (1)
  1. OXBRYTA [Suspect]
     Active Substance: VOXELOTOR
     Dosage: 300 MG, DISSOLVE 3 TABLETS AS DIRECTED ONCE DAILY
     Route: 048
     Dates: start: 20230103

REACTIONS (1)
  - Sickle cell anaemia with crisis [Not Recovered/Not Resolved]
